FAERS Safety Report 5038515-8 (Version None)
Quarter: 2006Q2

REPORT INFORMATION
  Report Type: 
  Country: None (occurrence: None)
  Receive Date: 20060629
  Receipt Date: 20060605
  Transmission Date: 20061013
  Serious: Yes (Other)
  Sender: FDA-Public Use
  Company Number: 2006UW11099

PATIENT
  Age: 71 Year
  Sex: Male
  Weight: 113.4 kg

DRUGS (6)
  1. PULMICORT [Suspect]
     Indication: DYSPNOEA
     Route: 055
     Dates: start: 20030101
  2. PULMICORT [Suspect]
     Route: 055
  3. EYE DROPS [Concomitant]
     Indication: GLAUCOMA
     Route: 031
  4. ALBUTEROL [Concomitant]
     Indication: ASTHMA
     Route: 055
  5. MAXAIR [Concomitant]
     Indication: ASTHMA
  6. LUPRON [Concomitant]
     Indication: PROSTATE CANCER

REACTIONS (4)
  - ASTHENIA [None]
  - DIABETES MELLITUS [None]
  - INTRAOCULAR PRESSURE INCREASED [None]
  - MUSCULAR WEAKNESS [None]
